FAERS Safety Report 4775589-3 (Version None)
Quarter: 2005Q3

REPORT INFORMATION
  Report Type: 
  Country: None (occurrence: None)
  Receive Date: 20050922
  Receipt Date: 20050901
  Transmission Date: 20060218
  Serious: Yes (Hospitalization)
  Sender: FDA-Public Use
  Company Number: 200517744GDDC

PATIENT
  Age: 45 Year
  Sex: Male
  Weight: 72.2 kg

DRUGS (3)
  1. DOCETAXEL [Suspect]
     Indication: NEOPLASM MALIGNANT
     Dosage: DOSE: UNK
     Route: 042
     Dates: start: 20050823, end: 20050823
  2. CETUXIMAB [Suspect]
     Indication: NEOPLASM MALIGNANT
     Dosage: DOSE: 168 MG TOTAL DOSE GIVEN THIS COURSE
     Route: 042
     Dates: start: 20050830, end: 20050830
  3. RADIATION THERAPY [Suspect]
     Indication: NEOPLASM MALIGNANT
     Dosage: DOSE: EXTERNAL BEAM, 2D (38 GY)
     Dates: end: 20050909

REACTIONS (7)
  - HEART RATE INCREASED [None]
  - HEPATIC STEATOSIS [None]
  - HYPERSENSITIVITY [None]
  - HYPOTENSION [None]
  - LUNG NEOPLASM [None]
  - OXYGEN SATURATION DECREASED [None]
  - PYREXIA [None]
